FAERS Safety Report 8247691-5 (Version None)
Quarter: 2012Q1

REPORT INFORMATION
  Report Type: 
  Country: None (occurrence: None)
  Receive Date: 20120330
  Receipt Date: 20120329
  Transmission Date: 20120608
  Serious: Yes (Other)
  Sender: FDA-Public Use
  Company Number: US-PFIZER INC-2012081001

PATIENT
  Sex: Male
  Weight: 92.971 kg

DRUGS (3)
  1. METOPROLOL SUCCINATE [Concomitant]
     Dosage: 50 MG, DAILY
  2. LIPITOR [Suspect]
     Indication: BLOOD CHOLESTEROL ABNORMAL
     Dosage: 20 MG, DAILY
     Route: 048
  3. AMLODIPINE BESILATE [Concomitant]
     Dosage: 5 MG, DAILY

REACTIONS (1)
  - DIABETES MELLITUS [None]
